FAERS Safety Report 10978500 (Version 1)
Quarter: 2015Q2

REPORT INFORMATION
  Report Type: Spontaneous
  Country: US (occurrence: US)
  Receive Date: 20150402
  Receipt Date: 20150402
  Transmission Date: 20150821
  Serious: Yes (Hospitalization)
  Sender: FDA-Public Use
  Company Number: US-BEH-2015048978

PATIENT
  Sex: Female
  Weight: 54 kg

DRUGS (18)
  1. ANTICHOLINERGICS [Concomitant]
     Active Substance: UNSPECIFIED INGREDIENT
  2. PRIVIGEN [Suspect]
     Active Substance: HUMAN IMMUNOGLOBULIN G
     Indication: HYPOGLOBULINAEMIA
     Dosage: 20 GM VIAL; 20 GM EVERY 4 WEEKS
     Route: 042
  3. SODIUM CHLORIDE. [Concomitant]
     Active Substance: SODIUM CHLORIDE
  4. BIOTIN [Concomitant]
     Active Substance: BIOTIN
  5. CALCIUM [Concomitant]
     Active Substance: CALCIUM
  6. VITAMIN C [Concomitant]
     Active Substance: ASCORBIC ACID
  7. FOLIC ACID. [Concomitant]
     Active Substance: FOLIC ACID
  8. CIPRO [Concomitant]
     Active Substance: CIPROFLOXACIN HYDROCHLORIDE
  9. SYNTHROID [Concomitant]
     Active Substance: LEVOTHYROXINE SODIUM
  10. VITAMIN D [Concomitant]
     Active Substance: CHOLECALCIFEROL
  11. EPIPEN [Concomitant]
     Active Substance: EPINEPHRINE
  12. NORMAL SALINE [Concomitant]
     Active Substance: SODIUM CHLORIDE
  13. FOSAMAX [Concomitant]
     Active Substance: ALENDRONATE SODIUM
  14. SYMBICORT [Concomitant]
     Active Substance: BUDESONIDE\FORMOTEROL FUMARATE DIHYDRATE
  15. LOPERAMIDE [Concomitant]
     Active Substance: LOPERAMIDE
  16. ATENOLOL. [Concomitant]
     Active Substance: ATENOLOL
  17. PRIVIGEN [Suspect]
     Active Substance: HUMAN IMMUNOGLOBULIN G
     Indication: SELECTIVE IGG SUBCLASS DEFICIENCY
     Dosage: 20 GM VIAL; 20 GM EVERY 4 WEEKS
     Route: 042
  18. DIOVAN [Concomitant]
     Active Substance: VALSARTAN

REACTIONS (1)
  - Bronchitis [Unknown]
